FAERS Safety Report 4368512-7 (Version None)
Quarter: 2004Q2

REPORT INFORMATION
  Report Type: 
  Country: None (occurrence: None)
  Receive Date: 20040602
  Receipt Date: 20040129
  Transmission Date: 20050107
  Serious: No
  Sender: FDA-Public Use
  Company Number: US-GLAXOSMITHKLINE-A0495752A

PATIENT
  Age: 10 Year
  Sex: Male

DRUGS (1)
  1. AUGMENTIN ES-600 [Suspect]
     Indication: ILL-DEFINED DISORDER
     Route: 048
     Dates: start: 20040128, end: 20040129

REACTIONS (1)
  - URTICARIA [None]
